FAERS Safety Report 5387537-6 (Version None)
Quarter: 2007Q3

REPORT INFORMATION
  Report Type: 
  Country: None (occurrence: None)
  Receive Date: 20070711
  Receipt Date: 20070711
  Transmission Date: 20080115
  Serious: Yes (Hospitalization)
  Sender: FDA-Public Use
  Company Number: None

PATIENT
  Age: 80 Year
  Sex: Male
  Weight: 95.5 kg

DRUGS (3)
  1. OXYCODONE HCL [Suspect]
     Indication: HERPES ZOSTER
     Dosage: 7.5MGQ6H,7.5MGQ6H,ORAL
     Route: 048
     Dates: start: 20070330, end: 20070403
  2. OXYCODONE HCL [Suspect]
     Indication: PAIN
     Dosage: 7.5MGQ6H,7.5MGQ6H,ORAL
     Route: 048
     Dates: start: 20070330, end: 20070403
  3. GABAPENTIN CAP [Concomitant]

REACTIONS (1)
  - SEDATION [None]
